FAERS Safety Report 14033970 (Version 1)
Quarter: 2017Q4

REPORT INFORMATION
  Report Type: Spontaneous
  Country: US (occurrence: None)
  Receive Date: 20171003
  Receipt Date: 20171003
  Transmission Date: 20180321
  Serious: No
  Sender: FDA-Public Use
  Company Number: None

PATIENT
  Sex: Female

DRUGS (1)
  1. ERIVEDGE [Suspect]
     Active Substance: VISMODEGIB
     Indication: MULTIPLE CONGENITAL ABNORMALITIES
     Route: 048
     Dates: start: 20150605

REACTIONS (1)
  - Seizure [None]

NARRATIVE: CASE EVENT DATE: 2017
